FAERS Safety Report 16663692 (Version 1)
Quarter: 2019Q3

REPORT INFORMATION
  Report Type: Spontaneous
  Country: DE (occurrence: DE)
  Receive Date: 20190802
  Receipt Date: 20190802
  Transmission Date: 20191004
  Serious: Yes (Other)
  Sender: FDA-Public Use
  Company Number: DE-MYLANLABS-2019M1071745

PATIENT
  Sex: Male

DRUGS (4)
  1. CARBAMAZEPINE. [Suspect]
     Active Substance: CARBAMAZEPINE
     Indication: EPILEPSY
     Dosage: UNK
     Route: 065
  2. CEFPODOXIME [Interacting]
     Active Substance: CEFPODOXIME
     Indication: NASOPHARYNGITIS
     Dosage: 1 DF, BID
     Route: 065
  3. CEFPODOXIME [Interacting]
     Active Substance: CEFPODOXIME
     Indication: PYREXIA
     Dosage: UNK
  4. LUMINAL                            /00023201/ [Interacting]
     Active Substance: PHENOBARBITAL SODIUM
     Indication: EPILEPSY
     Dosage: UNK
     Route: 065

REACTIONS (5)
  - Speech disorder [Unknown]
  - Musculoskeletal stiffness [Unknown]
  - Drug interaction [Unknown]
  - Cerebrovascular accident [Unknown]
  - Balance disorder [Unknown]
